FAERS Safety Report 5047860-1 (Version None)
Quarter: 2006Q3

REPORT INFORMATION
  Report Type: 
  Country: None (occurrence: None)
  Receive Date: 20060706
  Receipt Date: 20060706
  Transmission Date: 20061208
  Serious: Yes (Hospitalization)
  Sender: FDA-Public Use
  Company Number: None

PATIENT
  Age: 70 Year
  Sex: Male

DRUGS (17)
  1. METHADONE HCL [Suspect]
     Indication: BACK PAIN
     Dosage: 20MG Q4-5H    PO
     Route: 048
     Dates: start: 20051025, end: 20060705
  2. OXYCODONE AND ACETAMINOPHEN [Suspect]
     Indication: BACK PAIN
     Dosage: 2 PO  BID       PO
     Route: 048
     Dates: start: 20060307, end: 20060705
  3. WARFARIN NA [Concomitant]
  4. METOPROLOL TARTRATE [Concomitant]
  5. FOSINOPRIL NA [Concomitant]
  6. POTASSIUM CHLORIDE [Concomitant]
  7. SIMVASTATIN [Concomitant]
  8. GEMFIBROZIL [Concomitant]
  9. METFORMIN HYDROCHLORIDE [Concomitant]
  10. OMEPRAZOLE [Concomitant]
  11. GABAPENTIN [Concomitant]
  12. CARBIDOPA AND LEVODOPA [Concomitant]
  13. FINASTERIDE [Concomitant]
  14. DOCUSATE [Concomitant]
  15. MECLIZINE HCL [Concomitant]
  16. METHYLCELLULOSE [Concomitant]
  17. ALLOPURINOL [Concomitant]

REACTIONS (6)
  - ASTHENIA [None]
  - FALL [None]
  - HYPERSOMNIA [None]
  - INADEQUATE ANALGESIA [None]
  - INCORRECT DOSE ADMINISTERED [None]
  - LETHARGY [None]
